FAERS Safety Report 9569992 (Version 2)
Quarter: 2014Q1

REPORT INFORMATION
  Report Type: Spontaneous
  Country: US (occurrence: US)
  Receive Date: 20130930
  Receipt Date: 20140227
  Transmission Date: 20141002
  Serious: No
  Sender: FDA-Public Use
  Company Number: US-AMGEN-USASP2013065492

PATIENT
  Age: 55 Year
  Sex: Male
  Weight: 99.77 kg

DRUGS (2)
  1. ENBREL [Suspect]
     Indication: PSORIASIS
     Dosage: 50 MG, QWK
     Route: 058
     Dates: start: 2008, end: 20130916
  2. PRILOSEC                           /00661201/ [Concomitant]
     Dosage: UNK

REACTIONS (1)
  - Psoriasis [Unknown]
